FAERS Safety Report 10697874 (Version 1)
Quarter: 2015Q1

REPORT INFORMATION
  Report Type: Spontaneous
  Country: GB (occurrence: None)
  Receive Date: 20150106
  Receipt Date: 20150106
  Transmission Date: 20150721
  Serious: Yes (Other)
  Sender: FDA-Public Use
  Company Number: GB-DEXPHARM-20141075

PATIENT
  Sex: Male

DRUGS (4)
  1. OMEPRAZOLE. [Suspect]
     Active Substance: OMEPRAZOLE
     Indication: EPIGASTRIC DISCOMFORT
     Dosage: 20 MG MILLIGRAM(S)?
     Route: 048
     Dates: start: 20120730
  2. VENLAFAXINE [Suspect]
     Active Substance: VENLAFAXINE HYDROCHLORIDE
     Indication: DEPRESSION
     Dosage: 75 MG MILLGRAM(S), 1 IN 1 DAYS, ORAL ?
     Route: 048
     Dates: start: 20131227, end: 20140624
  3. VENLAFAXINE [Suspect]
     Active Substance: VENLAFAXINE HYDROCHLORIDE
     Indication: DEPRESSION
     Dosage: 150 MG MILLGRAM(S), 1 IN 1 DAYS, ORAL
     Route: 048
     Dates: start: 20130424, end: 20131013
  4. AMOROLFINE [Concomitant]
     Active Substance: AMOROLFINE

REACTIONS (4)
  - Drug interaction [None]
  - Onychomycosis [None]
  - Therapeutic response unexpected [None]
  - Elevated mood [None]
